FAERS Safety Report 21948171 (Version 2)
Quarter: 2023Q1

REPORT INFORMATION
  Report Type: Spontaneous
  Country: RU (occurrence: RU)
  Receive Date: 20230203
  Receipt Date: 20230222
  Transmission Date: 20230418
  Serious: Yes (Death, Hospitalization)
  Sender: FDA-Public Use
  Company Number: RU-TEVA-2023-RU-2851797

PATIENT
  Age: 14 Year
  Sex: Female

DRUGS (15)
  1. VINCRISTINE [Suspect]
     Active Substance: VINCRISTINE
     Indication: Undifferentiated sarcoma
     Route: 065
  2. VINCRISTINE [Suspect]
     Active Substance: VINCRISTINE
     Indication: Hepatic sarcoma
  3. IFOSFAMIDE [Suspect]
     Active Substance: IFOSFAMIDE
     Indication: Undifferentiated sarcoma
     Route: 065
  4. IFOSFAMIDE [Suspect]
     Active Substance: IFOSFAMIDE
     Indication: Hepatic sarcoma
  5. ACTINOMYCIN D [Suspect]
     Active Substance: DACTINOMYCIN
     Indication: Undifferentiated sarcoma
     Route: 065
  6. ACTINOMYCIN D [Suspect]
     Active Substance: DACTINOMYCIN
     Indication: Hepatic sarcoma
  7. LIPIODOL [Concomitant]
     Active Substance: ETHIODIZED OIL
     Indication: Therapeutic embolisation
     Dosage: ROUTE: {INFUSION}
     Route: 050
  8. DOXORUBICIN [Concomitant]
     Active Substance: DOXORUBICIN
     Indication: Undifferentiated sarcoma
     Dosage: ROUTE: {INFUSION}, RECEIVED IN A MIXTURE OF ETHIODIZED-OIL AND DOXORUBICIN (50 MG)
     Route: 050
  9. DOXORUBICIN [Concomitant]
     Active Substance: DOXORUBICIN
     Indication: Hepatic sarcoma
     Dosage: ROUTE: {INFUSION}, OVER 2H
     Route: 050
  10. CISPLATIN [Concomitant]
     Active Substance: CISPLATIN
     Indication: Undifferentiated sarcoma
     Dosage: ROUTE: {INFUSION}, OVER 5 HOURS (FIRST CHEMOEMBOLISATION)
     Route: 050
  11. CISPLATIN [Concomitant]
     Active Substance: CISPLATIN
     Indication: Hepatic sarcoma
  12. OXALIPLATIN [Concomitant]
     Active Substance: OXALIPLATIN
     Indication: Undifferentiated sarcoma
     Dosage: ROUTE: {INFUSION}
     Route: 050
  13. OXALIPLATIN [Concomitant]
     Active Substance: OXALIPLATIN
     Indication: Hepatic sarcoma
     Dosage: ROUTE: {INFUSION}, FOR 1 HOUR
     Route: 050
  14. MORPHINE [Concomitant]
     Active Substance: MORPHINE
     Indication: Post embolisation syndrome
     Route: 065
  15. NAROPIN [Concomitant]
     Active Substance: ROPIVACAINE HYDROCHLORIDE
     Indication: Post embolisation syndrome
     Route: 065

REACTIONS (1)
  - Drug ineffective [Fatal]
